FAERS Safety Report 5801441-8 (Version None)
Quarter: 2008Q2

REPORT INFORMATION
  Report Type: 
  Country: None (occurrence: None)
  Receive Date: 20080626
  Receipt Date: 20071002
  Transmission Date: 20081010
  Serious: Yes (Hospitalization)
  Sender: FDA-Public Use
  Company Number: 522775

PATIENT

DRUGS (2)
  1. XELODA [Suspect]
  2. LITHIUM (LITHIUM NOS) [Concomitant]

REACTIONS (1)
  - DIARRHOEA [None]
